FAERS Safety Report 19137580 (Version 2)
Quarter: 2021Q2

REPORT INFORMATION
  Report Type: Spontaneous
  Country: US (occurrence: US)
  Receive Date: 20210414
  Receipt Date: 20210527
  Transmission Date: 20210717
  Serious: Yes (Other)
  Sender: FDA-Public Use
  Company Number: US-GLAXOSMITHKLINE-USCH2021018835

PATIENT
  Age: 59 Year
  Sex: Male

DRUGS (1)
  1. EXCEDRIN EXTRA STRENGTH [Suspect]
     Active Substance: ACETAMINOPHEN\ASPIRIN\CAFFEINE
     Indication: PRODUCT USED FOR UNKNOWN INDICATION
     Dosage: UNK
     Dates: start: 20210406

REACTIONS (4)
  - Product complaint [Unknown]
  - Foreign body in throat [Unknown]
  - Dyspepsia [Unknown]
  - Medication error [Unknown]

NARRATIVE: CASE EVENT DATE: 20210406
